FAERS Safety Report 25438490 (Version 1)
Quarter: 2025Q2

REPORT INFORMATION
  Report Type: Spontaneous
  Country: CA (occurrence: CA)
  Receive Date: 20250616
  Receipt Date: 20250616
  Transmission Date: 20250717
  Serious: Yes (Death, Life-Threatening, Hospitalization, Disabling, Other)
  Sender: Haleon PLC
  Company Number: CA-HALEON-2247024

PATIENT
  Age: 80 Year
  Sex: Male
  Weight: 69 kg

DRUGS (211)
  1. FLONASE ALLERGY RELIEF [Suspect]
     Active Substance: FLUTICASONE PROPIONATE
     Indication: Product used for unknown indication
  2. FLONASE ALLERGY RELIEF [Suspect]
     Active Substance: FLUTICASONE PROPIONATE
     Indication: Nutritional supplementation
  3. VITAMIN C [Suspect]
     Active Substance: ASCORBIC ACID
     Indication: Constipation
     Route: 048
  4. HEPARIN SODIUM [Suspect]
     Active Substance: HEPARIN SODIUM
     Indication: Product used for unknown indication
     Route: 042
  5. HEPARIN SODIUM [Suspect]
     Active Substance: HEPARIN SODIUM
     Indication: Anticoagulant therapy
     Route: 042
  6. HEPARIN SODIUM [Suspect]
     Active Substance: HEPARIN SODIUM
     Route: 042
  7. HEPARIN SODIUM [Suspect]
     Active Substance: HEPARIN SODIUM
     Route: 017
  8. HEPARIN SODIUM [Suspect]
     Active Substance: HEPARIN SODIUM
  9. HEPARIN SODIUM [Suspect]
     Active Substance: HEPARIN SODIUM
     Route: 017
  10. HEPARIN SODIUM [Suspect]
     Active Substance: HEPARIN SODIUM
     Route: 042
  11. HEPARIN SODIUM [Suspect]
     Active Substance: HEPARIN SODIUM
     Route: 042
  12. HEPARIN SODIUM [Suspect]
     Active Substance: HEPARIN SODIUM
     Route: 017
  13. HEPARIN SODIUM [Suspect]
     Active Substance: HEPARIN SODIUM
     Route: 042
  14. HEPARIN SODIUM [Suspect]
     Active Substance: HEPARIN SODIUM
     Route: 042
  15. HEPARIN SODIUM [Suspect]
     Active Substance: HEPARIN SODIUM
     Route: 042
  16. HEPARIN SODIUM [Suspect]
     Active Substance: HEPARIN SODIUM
  17. ALLOPURINOL [Suspect]
     Active Substance: ALLOPURINOL
     Indication: Product used for unknown indication
     Route: 048
  18. ALLOPURINOL [Suspect]
     Active Substance: ALLOPURINOL
     Indication: Off label use
  19. ALLOPURINOL [Suspect]
     Active Substance: ALLOPURINOL
     Indication: Intentional product misuse
  20. ALLOPURINOL [Suspect]
     Active Substance: ALLOPURINOL
     Indication: Blood uric acid increased
  21. ALLOPURINOL [Suspect]
     Active Substance: ALLOPURINOL
     Indication: Product used for unknown indication
     Dosage: DOSE FORM: UNKNOWN
     Route: 048
  22. ALLOPURINOL [Suspect]
     Active Substance: ALLOPURINOL
     Indication: Off label use
     Dosage: DOSE FORM: UNKNOWN
     Route: 048
  23. ALLOPURINOL [Suspect]
     Active Substance: ALLOPURINOL
     Indication: Intentional product misuse
     Dosage: DOSE FORM: UNKNOWN
     Route: 048
  24. ALLOPURINOL [Suspect]
     Active Substance: ALLOPURINOL
     Indication: Blood uric acid increased
  25. ALLOPURINOL [Suspect]
     Active Substance: ALLOPURINOL
  26. ALLOPURINOL [Suspect]
     Active Substance: ALLOPURINOL
  27. ALLOPURINOL [Suspect]
     Active Substance: ALLOPURINOL
     Route: 048
  28. CEFTRIAXONE SODIUM [Suspect]
     Active Substance: CEFTRIAXONE SODIUM
     Indication: Bacterial infection
     Route: 042
  29. CEFTRIAXONE SODIUM [Suspect]
     Active Substance: CEFTRIAXONE SODIUM
  30. CEFTRIAXONE SODIUM [Suspect]
     Active Substance: CEFTRIAXONE SODIUM
  31. CEFTRIAXONE SODIUM [Suspect]
     Active Substance: CEFTRIAXONE SODIUM
     Route: 042
  32. DOBUTAMINE [Suspect]
     Active Substance: DOBUTAMINE HYDROCHLORIDE
     Indication: Product used for unknown indication
     Route: 042
  33. DOBUTAMINE [Suspect]
     Active Substance: DOBUTAMINE HYDROCHLORIDE
     Indication: Off label use
     Route: 042
  34. DOBUTAMINE [Suspect]
     Active Substance: DOBUTAMINE HYDROCHLORIDE
     Indication: Cardiogenic shock
  35. DOBUTAMINE [Suspect]
     Active Substance: DOBUTAMINE HYDROCHLORIDE
  36. GABAPENTIN [Suspect]
     Active Substance: GABAPENTIN
     Indication: Product used for unknown indication
     Route: 048
  37. GABAPENTIN [Suspect]
     Active Substance: GABAPENTIN
     Indication: Off label use
     Route: 048
  38. GABAPENTIN [Suspect]
     Active Substance: GABAPENTIN
     Indication: Neuralgia
     Route: 048
  39. GABAPENTIN [Suspect]
     Active Substance: GABAPENTIN
     Indication: Intentional product misuse
     Route: 048
  40. GABAPENTIN [Suspect]
     Active Substance: GABAPENTIN
     Route: 048
  41. HYDROMORPHONE [Suspect]
     Active Substance: HYDROMORPHONE
     Indication: Analgesic therapy
     Route: 058
  42. HYDROMORPHONE [Suspect]
     Active Substance: HYDROMORPHONE
     Route: 058
  43. HYDROMORPHONE [Suspect]
     Active Substance: HYDROMORPHONE
     Route: 058
  44. HYDROMORPHONE [Suspect]
     Active Substance: HYDROMORPHONE
     Route: 058
  45. HYDROMORPHONE [Suspect]
     Active Substance: HYDROMORPHONE
     Route: 058
  46. HYDROMORPHONE [Suspect]
     Active Substance: HYDROMORPHONE
     Route: 058
  47. HYDROMORPHONE [Suspect]
     Active Substance: HYDROMORPHONE
     Dosage: DOSE FORM: UNKNOWN
     Route: 058
  48. HYDROMORPHONE [Suspect]
     Active Substance: HYDROMORPHONE
     Dosage: DOSE FORM: UNKNOWN
     Route: 058
  49. HYDROMORPHONE [Suspect]
     Active Substance: HYDROMORPHONE
     Dosage: ROUTE: UNKNOWN, DOSE FORM: UNKNOWN
  50. HYDROMORPHONE [Suspect]
     Active Substance: HYDROMORPHONE
  51. HYDROMORPHONE [Suspect]
     Active Substance: HYDROMORPHONE
     Dosage: DOSE FORM: UNKNOWN
     Route: 058
  52. HYDROMORPHONE [Suspect]
     Active Substance: HYDROMORPHONE
     Route: 058
  53. HYDROMORPHONE HYDROCHLORIDE [Suspect]
     Active Substance: HYDROMORPHONE HYDROCHLORIDE
     Indication: Product used for unknown indication
     Route: 058
  54. HYDROMORPHONE HYDROCHLORIDE [Suspect]
     Active Substance: HYDROMORPHONE HYDROCHLORIDE
     Indication: Off label use
     Dosage: DOSE FORM: UNKNOWN
     Route: 058
  55. HYDROMORPHONE HYDROCHLORIDE [Suspect]
     Active Substance: HYDROMORPHONE HYDROCHLORIDE
     Indication: Intentional product misuse
     Route: 058
  56. HYDROMORPHONE HYDROCHLORIDE [Suspect]
     Active Substance: HYDROMORPHONE HYDROCHLORIDE
     Indication: Analgesic therapy
  57. HYDROMORPHONE HYDROCHLORIDE [Suspect]
     Active Substance: HYDROMORPHONE HYDROCHLORIDE
     Route: 058
  58. HYDROMORPHONE HYDROCHLORIDE [Suspect]
     Active Substance: HYDROMORPHONE HYDROCHLORIDE
     Dosage: ROUTE: UNKNOWN, DOSE FORM: UNKNOWN
  59. HYDROMORPHONE HYDROCHLORIDE [Suspect]
     Active Substance: HYDROMORPHONE HYDROCHLORIDE
     Route: 058
  60. HYDROMORPHONE HYDROCHLORIDE [Suspect]
     Active Substance: HYDROMORPHONE HYDROCHLORIDE
     Route: 058
  61. HYDROMORPHONE HYDROCHLORIDE [Suspect]
     Active Substance: HYDROMORPHONE HYDROCHLORIDE
     Route: 058
  62. HYDROMORPHONE HYDROCHLORIDE [Suspect]
     Active Substance: HYDROMORPHONE HYDROCHLORIDE
     Dosage: DOSE FORM: UNKNOWN
     Route: 058
  63. HYDROMORPHONE HYDROCHLORIDE [Suspect]
     Active Substance: HYDROMORPHONE HYDROCHLORIDE
     Route: 058
  64. HYDROMORPHONE HYDROCHLORIDE [Suspect]
     Active Substance: HYDROMORPHONE HYDROCHLORIDE
     Route: 058
  65. HYDROMORPHONE HYDROCHLORIDE [Suspect]
     Active Substance: HYDROMORPHONE HYDROCHLORIDE
     Route: 058
  66. HYDROMORPHONE HYDROCHLORIDE [Suspect]
     Active Substance: HYDROMORPHONE HYDROCHLORIDE
     Route: 058
  67. METRONIDAZOLE [Suspect]
     Active Substance: METRONIDAZOLE
     Indication: Bacterial infection
     Route: 048
  68. METRONIDAZOLE [Suspect]
     Active Substance: METRONIDAZOLE
  69. METRONIDAZOLE [Suspect]
     Active Substance: METRONIDAZOLE
  70. METRONIDAZOLE [Suspect]
     Active Substance: METRONIDAZOLE
  71. METRONIDAZOLE [Suspect]
     Active Substance: METRONIDAZOLE
     Route: 048
  72. METRONIDAZOLE [Suspect]
     Active Substance: METRONIDAZOLE
     Route: 048
  73. METRONIDAZOLE [Suspect]
     Active Substance: METRONIDAZOLE
     Dosage: DOSE FORM: UNKNOWN
     Route: 048
  74. METRONIDAZOLE [Suspect]
     Active Substance: METRONIDAZOLE
  75. METRONIDAZOLE [Suspect]
     Active Substance: METRONIDAZOLE
     Route: 048
  76. METRONIDAZOLE [Suspect]
     Active Substance: METRONIDAZOLE
     Dosage: DOSE FORM: UNKNOWN
     Route: 048
  77. METRONIDAZOLE [Suspect]
     Active Substance: METRONIDAZOLE
  78. NOREPINEPHRINE [Suspect]
     Active Substance: NOREPINEPHRINE
     Indication: Stress
     Route: 042
  79. NOREPINEPHRINE [Suspect]
     Active Substance: NOREPINEPHRINE
     Route: 042
  80. NOREPINEPHRINE [Suspect]
     Active Substance: NOREPINEPHRINE
     Dosage: DOSE FORM: UNKNOWN
     Route: 048
  81. NOREPINEPHRINE [Suspect]
     Active Substance: NOREPINEPHRINE
  82. NOREPINEPHRINE [Suspect]
     Active Substance: NOREPINEPHRINE
     Dosage: DOSE FORM: UNKNOWN
     Route: 048
  83. NOREPINEPHRINE [Suspect]
     Active Substance: NOREPINEPHRINE
     Dosage: DOSE FORM: UNKNOWN
     Route: 048
  84. POTASSIUM CHLORIDE [Suspect]
     Active Substance: POTASSIUM CHLORIDE
     Indication: Product used for unknown indication
  85. POTASSIUM CHLORIDE [Suspect]
     Active Substance: POTASSIUM CHLORIDE
     Indication: Constipation
     Route: 048
  86. ALBUTEROL [Suspect]
     Active Substance: ALBUTEROL
     Indication: Product used for unknown indication
     Dosage: INHALATION
  87. ALBUTEROL [Suspect]
     Active Substance: ALBUTEROL
     Indication: Off label use
     Dosage: INHALATION, DOSE FORM: UNKNOWN
  88. ALBUTEROL [Suspect]
     Active Substance: ALBUTEROL
     Indication: Intentional product misuse
     Dosage: INHALATION, DOSE FORM: UNKNOWN
  89. ALBUTEROL [Suspect]
     Active Substance: ALBUTEROL
     Indication: Chronic obstructive pulmonary disease
     Dosage: ROUTE: UNKNOWN, DOSE FORM: UNKNOWN
  90. ALBUTEROL [Suspect]
     Active Substance: ALBUTEROL
  91. ALBUTEROL [Suspect]
     Active Substance: ALBUTEROL
     Dosage: INHALATION, DOSE FORM: UNKNOWN
  92. ALBUTEROL [Suspect]
     Active Substance: ALBUTEROL
     Dosage: ROUTE: UNKNOWN, DOSE FORM: UNKNOWN
  93. ALBUTEROL [Suspect]
     Active Substance: ALBUTEROL
     Dosage: INHALATION, DOSE FORM: UNKNOWN
  94. ALBUTEROL [Suspect]
     Active Substance: ALBUTEROL
  95. ALBUTEROL [Suspect]
     Active Substance: ALBUTEROL
  96. ALBUTEROL [Suspect]
     Active Substance: ALBUTEROL
     Dosage: ROUTE: UNKNOWN, DOSE FORM: UNKNOWN
  97. ALBUTEROL [Suspect]
     Active Substance: ALBUTEROL
  98. ALBUTEROL [Suspect]
     Active Substance: ALBUTEROL
  99. ALBUTEROL [Suspect]
     Active Substance: ALBUTEROL
     Dosage: INHALATION, DOSE FORM: UNKNOWN
  100. ALBUTEROL [Suspect]
     Active Substance: ALBUTEROL
  101. ALBUTEROL [Suspect]
     Active Substance: ALBUTEROL
  102. ALBUTEROL [Suspect]
     Active Substance: ALBUTEROL
  103. ALBUTEROL [Suspect]
     Active Substance: ALBUTEROL
  104. ALBUTEROL [Suspect]
     Active Substance: ALBUTEROL
  105. ALBUTEROL [Suspect]
     Active Substance: ALBUTEROL
     Dosage: ROUTE: UNKNOWN, DOSE FORM: UNKNOWN
  106. ALBUTEROL [Suspect]
     Active Substance: ALBUTEROL
  107. ALBUTEROL [Suspect]
     Active Substance: ALBUTEROL
     Dosage: ROUTE: UNKNOWN, DOSE FORM: UNKNOWN
  108. ALBUTEROL [Suspect]
     Active Substance: ALBUTEROL
  109. ALBUTEROL [Suspect]
     Active Substance: ALBUTEROL
  110. ALBUTEROL [Suspect]
     Active Substance: ALBUTEROL
     Dosage: INHALATION, DOSE FORM: UNKNOWN
  111. ALBUTEROL [Suspect]
     Active Substance: ALBUTEROL
  112. ALBUTEROL [Suspect]
     Active Substance: ALBUTEROL
  113. ALBUTEROL [Suspect]
     Active Substance: ALBUTEROL
  114. ALBUTEROL [Suspect]
     Active Substance: ALBUTEROL
  115. ALBUTEROL [Suspect]
     Active Substance: ALBUTEROL
  116. ALBUTEROL [Suspect]
     Active Substance: ALBUTEROL
     Dosage: ROUTE: UNKNOWN, DOSE FORM: UNKNOWN
  117. ALBUTEROL [Suspect]
     Active Substance: ALBUTEROL
     Dosage: ROUTE: UNKNOWN, DOSE FORM: UNKNOWN
  118. ALBUTEROL [Suspect]
     Active Substance: ALBUTEROL
  119. ALBUTEROL [Suspect]
     Active Substance: ALBUTEROL
     Dosage: ROUTE: UNKNOWN, DOSE FORM: UNKNOWN
  120. ALBUTEROL [Suspect]
     Active Substance: ALBUTEROL
     Dosage: INHALATION, DOSE FORM: UNKNOWN
  121. ALBUTEROL [Suspect]
     Active Substance: ALBUTEROL
     Dosage: ROUTE: UNKNOWN, DOSE FORM: UNKNOWN
  122. ALBUTEROL [Suspect]
     Active Substance: ALBUTEROL
  123. ALBUTEROL [Suspect]
     Active Substance: ALBUTEROL
  124. ALBUTEROL [Suspect]
     Active Substance: ALBUTEROL
  125. ALBUTEROL [Suspect]
     Active Substance: ALBUTEROL
  126. ALBUTEROL [Suspect]
     Active Substance: ALBUTEROL
     Dosage: INHALATION, DOSE FORM: UNKNOWN
  127. AMIODARONE [Suspect]
     Active Substance: AMIODARONE
     Indication: Ventricular fibrillation
     Route: 042
  128. AMIODARONE [Suspect]
     Active Substance: AMIODARONE
     Indication: Product used for unknown indication
     Dosage: 1 DAY, DOSE FORM: UNKNOWN
     Route: 042
  129. AMIODARONE [Suspect]
     Active Substance: AMIODARONE
     Indication: Off label use
     Dosage: DOSE FORM: UNKNOWN, ROUTE: UNKNOWN
  130. AMIODARONE [Suspect]
     Active Substance: AMIODARONE
     Indication: Intentional product misuse
     Route: 042
  131. AMIODARONE [Suspect]
     Active Substance: AMIODARONE
     Indication: Drug therapy
  132. AMIODARONE [Suspect]
     Active Substance: AMIODARONE
  133. AMIODARONE [Suspect]
     Active Substance: AMIODARONE
  134. AMIODARONE [Suspect]
     Active Substance: AMIODARONE
  135. AMIODARONE [Suspect]
     Active Substance: AMIODARONE
  136. AMIODARONE [Suspect]
     Active Substance: AMIODARONE
     Dosage: DOSE FORM: UNKNOWN, ROUTE: UNKNOWN
  137. AMIODARONE [Suspect]
     Active Substance: AMIODARONE
     Route: 042
  138. AMIODARONE [Suspect]
     Active Substance: AMIODARONE
  139. AMIODARONE [Suspect]
     Active Substance: AMIODARONE
  140. AMIODARONE [Suspect]
     Active Substance: AMIODARONE
     Dosage: DOSE FORM: UNKNOWN, ROUTE: UNKNOWN
  141. DOCUSATE SODIUM [Suspect]
     Active Substance: DOCUSATE SODIUM
     Indication: Product used for unknown indication
  142. LANSOPRAZOLE [Suspect]
     Active Substance: LANSOPRAZOLE
     Indication: Off label use
     Route: 048
  143. LANSOPRAZOLE [Suspect]
     Active Substance: LANSOPRAZOLE
     Indication: Intentional product misuse
     Route: 048
  144. LANSOPRAZOLE [Suspect]
     Active Substance: LANSOPRAZOLE
     Indication: Antacid therapy
     Dosage: CAPSULE, DELAYED RELEASE
     Route: 048
  145. ONDANSETRON [Suspect]
     Active Substance: ONDANSETRON
     Indication: Vomiting
     Route: 042
  146. ONDANSETRON [Suspect]
     Active Substance: ONDANSETRON
     Indication: Product used for unknown indication
     Route: 042
  147. ONDANSETRON [Suspect]
     Active Substance: ONDANSETRON
     Indication: Off label use
     Dosage: DOSE FORM: UNKNOWN
     Route: 048
  148. ONDANSETRON [Suspect]
     Active Substance: ONDANSETRON
     Indication: Nausea
     Dosage: DOSE FORM: UNKNOWN
     Route: 048
  149. ONDANSETRON [Suspect]
     Active Substance: ONDANSETRON
     Route: 042
  150. ONDANSETRON [Suspect]
     Active Substance: ONDANSETRON
     Route: 042
  151. ONDANSETRON [Suspect]
     Active Substance: ONDANSETRON
     Route: 042
  152. ONDANSETRON [Suspect]
     Active Substance: ONDANSETRON
     Route: 042
  153. ONDANSETRON [Suspect]
     Active Substance: ONDANSETRON
     Dosage: DOSE FORM: UNKNOWN
     Route: 042
  154. ONDANSETRON [Suspect]
     Active Substance: ONDANSETRON
     Dosage: DOSE FORM: UNKNOWN
     Route: 042
  155. ONDANSETRON [Suspect]
     Active Substance: ONDANSETRON
     Dosage: DOSE FORM: UNKNOWN
     Route: 042
  156. ONDANSETRON [Suspect]
     Active Substance: ONDANSETRON
     Dosage: DOSE FORM: UNKNOWN
     Route: 042
  157. ONDANSETRON [Suspect]
     Active Substance: ONDANSETRON
     Dosage: DOSE FORM: UNKNOWN
     Route: 042
  158. ONDANSETRON [Suspect]
     Active Substance: ONDANSETRON
     Dosage: DOSE FORM: UNKNOWN
     Route: 042
  159. ONDANSETRON [Suspect]
     Active Substance: ONDANSETRON
     Dosage: DOSE FORM: UNKNOWN
     Route: 042
  160. ONDANSETRON [Suspect]
     Active Substance: ONDANSETRON
     Dosage: DOSE FORM: UNKNOWN
     Route: 042
  161. ONDANSETRON [Suspect]
     Active Substance: ONDANSETRON
     Route: 042
  162. ONDANSETRON [Suspect]
     Active Substance: ONDANSETRON
     Route: 042
  163. ONDANSETRON [Suspect]
     Active Substance: ONDANSETRON
     Route: 042
  164. ONDANSETRON [Suspect]
     Active Substance: ONDANSETRON
     Route: 042
  165. ONDANSETRON [Suspect]
     Active Substance: ONDANSETRON
  166. ONDANSETRON [Suspect]
     Active Substance: ONDANSETRON
     Route: 042
  167. ONDANSETRON [Suspect]
     Active Substance: ONDANSETRON
  168. ONDANSETRON [Suspect]
     Active Substance: ONDANSETRON
  169. ONDANSETRON [Suspect]
     Active Substance: ONDANSETRON
     Route: 042
  170. ONDANSETRON [Suspect]
     Active Substance: ONDANSETRON
     Dosage: DOSE FORM: UNKNOWN
     Route: 042
  171. ONDANSETRON [Suspect]
     Active Substance: ONDANSETRON
     Route: 042
  172. ONDANSETRON [Suspect]
     Active Substance: ONDANSETRON
     Route: 012
  173. ONDANSETRON [Suspect]
     Active Substance: ONDANSETRON
     Route: 042
  174. ONDANSETRON [Suspect]
     Active Substance: ONDANSETRON
     Route: 042
  175. ONDANSETRON [Suspect]
     Active Substance: ONDANSETRON
     Route: 042
  176. ONDANSETRON [Suspect]
     Active Substance: ONDANSETRON
     Dosage: DOSE FORM: UNKNOWN
     Route: 042
  177. ONDANSETRON [Suspect]
     Active Substance: ONDANSETRON
     Dosage: DOSE FORM: UNKNOWN
     Route: 042
  178. ONDANSETRON [Suspect]
     Active Substance: ONDANSETRON
     Route: 042
  179. ONDANSETRON [Suspect]
     Active Substance: ONDANSETRON
     Route: 042
  180. ONDANSETRON [Suspect]
     Active Substance: ONDANSETRON
     Route: 042
  181. ONDANSETRON [Suspect]
     Active Substance: ONDANSETRON
  182. SODIUM BICARBONATE [Suspect]
     Active Substance: SODIUM BICARBONATE
     Indication: Constipation
     Dosage: ROUTE: UNKNOWN
  183. SIMVASTATIN [Suspect]
     Active Substance: SIMVASTATIN
     Indication: Vitamin supplementation
     Route: 048
  184. SIMVASTATIN [Suspect]
     Active Substance: SIMVASTATIN
     Indication: Product used for unknown indication
     Route: 048
  185. SIMVASTATIN [Suspect]
     Active Substance: SIMVASTATIN
     Indication: Off label use
  186. SIMVASTATIN [Suspect]
     Active Substance: SIMVASTATIN
     Indication: Blood cholesterol increased
  187. SIMVASTATIN [Suspect]
     Active Substance: SIMVASTATIN
  188. THEOPHYLLINE [Suspect]
     Active Substance: THEOPHYLLINE
     Indication: Off label use
     Dosage: ROUTE: UNKNOWN
  189. THEOPHYLLINE [Suspect]
     Active Substance: THEOPHYLLINE
     Indication: Intentional product misuse
     Dosage: ROUTE: UNKNOWN
  190. THEOPHYLLINE [Suspect]
     Active Substance: THEOPHYLLINE
     Dosage: ROUTE: UNKNOWN
  191. THEOPHYLLINE [Suspect]
     Active Substance: THEOPHYLLINE
     Dosage: ROUTE: UNKNOWN
  192. THEOPHYLLINE [Suspect]
     Active Substance: THEOPHYLLINE
     Dosage: ROUTE: UNKNOWN
  193. THEOPHYLLINE [Suspect]
     Active Substance: THEOPHYLLINE
     Dosage: ROUTE: UNKNOWN
  194. THEOPHYLLINE [Suspect]
     Active Substance: THEOPHYLLINE
     Dosage: ROUTE: UNKNOWN
  195. THEOPHYLLINE [Suspect]
     Active Substance: THEOPHYLLINE
     Dosage: ROUTE: UNKNOWN
  196. THEOPHYLLINE [Suspect]
     Active Substance: THEOPHYLLINE
     Dosage: ROUTE: UNKNOWN
  197. VASOPRESSIN [Suspect]
     Active Substance: VASOPRESSIN
     Indication: Thrombosis
  198. VASOPRESSIN [Suspect]
     Active Substance: VASOPRESSIN
     Indication: Drug therapy
     Dosage: DOSE FORM: UNKNOWN
     Route: 042
  199. VASOPRESSIN [Suspect]
     Active Substance: VASOPRESSIN
     Dosage: DOSE FORM: UNKNOWN
     Route: 042
  200. VASOPRESSIN [Suspect]
     Active Substance: VASOPRESSIN
     Route: 042
  201. VASOPRESSIN [Suspect]
     Active Substance: VASOPRESSIN
  202. VASOPRESSIN [Suspect]
     Active Substance: VASOPRESSIN
     Route: 017
  203. VITAMIN K1 [Suspect]
     Active Substance: PHYTONADIONE
     Indication: Vitamin supplementation
     Route: 042
  204. VITAMIN K1 [Suspect]
     Active Substance: PHYTONADIONE
     Dosage: 1 DAY
     Route: 042
  205. VITAMIN K1 [Suspect]
     Active Substance: PHYTONADIONE
     Dosage: 1 DAY
     Route: 042
  206. VITAMIN K1 [Suspect]
     Active Substance: PHYTONADIONE
  207. AMIODARONE [Suspect]
     Active Substance: AMIODARONE
     Indication: Ventricular fibrillation
     Route: 042
  208. AMIODARONE [Suspect]
     Active Substance: AMIODARONE
     Indication: Product used for unknown indication
  209. AMIODARONE [Suspect]
     Active Substance: AMIODARONE
     Indication: Off label use
  210. AMIODARONE [Suspect]
     Active Substance: AMIODARONE
     Indication: Intentional product misuse
  211. AMIODARONE [Suspect]
     Active Substance: AMIODARONE
     Indication: Drug therapy

REACTIONS (8)
  - Ascites [Fatal]
  - Blood cholesterol increased [Fatal]
  - Condition aggravated [Fatal]
  - Chronic obstructive pulmonary disease [Fatal]
  - Bacterial infection [Fatal]
  - Appendicolith [Fatal]
  - Appendicitis [Fatal]
  - Constipation [Fatal]
